FAERS Safety Report 23201379 (Version 1)
Quarter: 2023Q4

REPORT INFORMATION
  Report Type: Report from Study
  Country: US (occurrence: US)
  Receive Date: 20231118
  Receipt Date: 20231118
  Transmission Date: 20240109
  Serious: No
  Sender: FDA-Public Use
  Company Number: US-ALXN-A202303217

PATIENT
  Sex: Male

DRUGS (10)
  1. SOLIRIS [Suspect]
     Active Substance: ECULIZUMAB
     Indication: Myasthenia gravis
     Dosage: UNK, Q2W
     Route: 065
     Dates: start: 20200422
  2. PREDNISONE [Suspect]
     Active Substance: PREDNISONE
     Indication: Product used for unknown indication
     Dosage: 5 MG, QD
     Route: 065
  3. PREDNISONE [Suspect]
     Active Substance: PREDNISONE
     Dosage: 7.5 MG, QOD
     Route: 065
  4. PREDNISONE [Suspect]
     Active Substance: PREDNISONE
     Dosage: 7 MILLIGRAM
     Route: 065
  5. PREDNISONE [Suspect]
     Active Substance: PREDNISONE
     Dosage: 10 MILLIGRAM, QD
     Route: 065
     Dates: start: 20231018
  6. MELOXICAM [Concomitant]
     Active Substance: MELOXICAM
     Indication: Product used for unknown indication
     Dosage: 7.5 MG, QD
     Route: 065
  7. ASPIRIN [Concomitant]
     Active Substance: ASPIRIN
     Indication: Product used for unknown indication
     Dosage: 81 MG, QD
     Route: 065
  8. MESTINON [Concomitant]
     Active Substance: PYRIDOSTIGMINE BROMIDE
     Indication: Product used for unknown indication
     Dosage: 60 MG, Q4H, 5X DAILY
     Route: 065
     Dates: start: 2018
  9. AZATHIOPRINE [Concomitant]
     Active Substance: AZATHIOPRINE
     Indication: Product used for unknown indication
     Dosage: 5 MG, 3X MORNING AND 2X AT NIGHT
     Route: 065
  10. METFORMIN [Concomitant]
     Active Substance: METFORMIN HYDROCHLORIDE
     Indication: Product used for unknown indication
     Dosage: 500 MG, BID
     Route: 065

REACTIONS (19)
  - Weight fluctuation [Unknown]
  - White blood cell count decreased [Unknown]
  - Peripheral vascular disorder [Unknown]
  - Blood calcium increased [Unknown]
  - Blood pressure abnormal [Unknown]
  - Thyroid disorder [Not Recovered/Not Resolved]
  - Muscular weakness [Recovering/Resolving]
  - Pharyngeal disorder [Recovering/Resolving]
  - Peripheral swelling [Unknown]
  - Eye disorder [Recovering/Resolving]
  - Limb injury [Unknown]
  - Mastication disorder [Unknown]
  - Asthenopia [Unknown]
  - Hyperhidrosis [Unknown]
  - Muscle spasms [Unknown]
  - Vein disorder [Unknown]
  - Erythema [Unknown]
  - Dyspnoea [Unknown]
  - Fatigue [Unknown]
